FAERS Safety Report 10467412 (Version 1)
Quarter: 2014Q3

REPORT INFORMATION
  Report Type: Spontaneous
  Country: US (occurrence: US)
  Receive Date: 20140922
  Receipt Date: 20140922
  Transmission Date: 20150326
  Serious: Yes (Other)
  Sender: FDA-Public Use
  Company Number: US-ABBVIE-14P-163-1285073-00

PATIENT
  Age: 74 Year
  Sex: Male
  Weight: 93.07 kg

DRUGS (3)
  1. ANDROGEL [Suspect]
     Active Substance: TESTOSTERONE
     Indication: BLOOD TESTOSTERONE DECREASED
     Route: 061
  2. BYSTOLIC [Concomitant]
     Active Substance: NEBIVOLOL HYDROCHLORIDE
     Indication: HYPERTENSION
  3. SYNTHROID [Concomitant]
     Active Substance: LEVOTHYROXINE SODIUM
     Indication: PRODUCT USED FOR UNKNOWN INDICATION

REACTIONS (4)
  - Loss of consciousness [Recovering/Resolving]
  - Fall [Recovering/Resolving]
  - Clavicle fracture [Recovered/Resolved]
  - Facial bones fracture [Recovering/Resolving]

NARRATIVE: CASE EVENT DATE: 20140913
